FAERS Safety Report 6011408-5 (Version None)
Quarter: 2008Q4

REPORT INFORMATION
  Report Type: 
  Country: None (occurrence: None)
  Receive Date: 20081217
  Receipt Date: 20081217
  Transmission Date: 20090506
  Serious: No
  Sender: FDA-Public Use
  Company Number: None

PATIENT
  Age: 42 Year
  Sex: Male
  Weight: 88.4514 kg

DRUGS (3)
  1. NORCO [Suspect]
     Indication: DIABETES MELLITUS
     Dosage: 7.5/325 MG 1-2 TABLETS EVERY PO
     Route: 048
     Dates: start: 20081213, end: 20081217
  2. NORCO [Suspect]
     Indication: ROAD TRAFFIC ACCIDENT
     Dosage: 7.5/325 MG 1-2 TABLETS EVERY PO
     Route: 048
     Dates: start: 20081213, end: 20081217
  3. NORCO [Suspect]
     Indication: UPPER LIMB FRACTURE
     Dosage: 7.5/325 MG 1-2 TABLETS EVERY PO
     Route: 048
     Dates: start: 20081213, end: 20081217

REACTIONS (3)
  - EPISTAXIS [None]
  - HYPERSOMNIA [None]
  - HYPOPHAGIA [None]
